FAERS Safety Report 10047035 (Version 1)
Quarter: 2014Q1

REPORT INFORMATION
  Report Type: Spontaneous
  Country: GB (occurrence: None)
  Receive Date: 20140327
  Receipt Date: 20140327
  Transmission Date: 20141002
  Serious: Yes (Other)
  Sender: FDA-Public Use
  Company Number: B0979776A

PATIENT
  Age: 22 Year
  Sex: Female

DRUGS (1)
  1. ZANAMIVIR (FORMULATION UNKNOWN) (GENERIC) (ZANAMIVIR) [Suspect]
     Indication: H1N1 INFLUENZA

REACTIONS (2)
  - Abortion spontaneous [None]
  - Exposure during pregnancy [None]
